FAERS Safety Report 5623007-5 (Version None)
Quarter: 2008Q1

REPORT INFORMATION
  Report Type: 
  Country: None (occurrence: None)
  Receive Date: 20080212
  Receipt Date: 20080201
  Transmission Date: 20080703
  Serious: Yes (Death)
  Sender: FDA-Public Use
  Company Number: KR-AVENTIS-200811142GDDC

PATIENT
  Age: 51 Year
  Sex: Female
  Weight: 97.5 kg

DRUGS (7)
  1. DOCETAXEL [Suspect]
     Indication: BREAST CANCER
     Route: 042
     Dates: start: 20070727, end: 20071001
  2. ADRIAMYCIN PFS [Suspect]
     Indication: BREAST CANCER
     Route: 042
     Dates: start: 20070727, end: 20071001
  3. CYCLOPHOSPHAMIDE [Suspect]
     Indication: BREAST CANCER
     Route: 042
     Dates: start: 20070727, end: 20071001
  4. AMLODIPINE [Concomitant]
  5. HYDROCHLOROTHIAZIDE [Concomitant]
  6. CANDESARTAN CILEXETIL [Concomitant]
  7. GINGKO BILOBA [Concomitant]

REACTIONS (1)
  - HYDROCEPHALUS [None]
